FAERS Safety Report 8116902-9 (Version None)
Quarter: 2012Q1

REPORT INFORMATION
  Report Type: 
  Country: None (occurrence: None)
  Receive Date: 20120206
  Receipt Date: 20120202
  Transmission Date: 20120608
  Serious: Yes (Death, Other)
  Sender: FDA-Public Use
  Company Number: PHHY2012CA008807

PATIENT
  Age: 83 Year
  Sex: Female

DRUGS (1)
  1. WARFARIN SODIUM [Suspect]
     Indication: RENAL FAILURE CHRONIC
     Dosage: UNK UKN, UNK

REACTIONS (2)
  - CALCIPHYLAXIS [None]
  - CEREBROVASCULAR ACCIDENT [None]
